FAERS Safety Report 9319041 (Version 1)
Quarter: 2013Q2

REPORT INFORMATION
  Report Type: Spontaneous
  Country: JP (occurrence: JP)
  Receive Date: 20130530
  Receipt Date: 20130530
  Transmission Date: 20140414
  Serious: Yes (Other)
  Sender: FDA-Public Use
  Company Number: JP-UCBSA-087073

PATIENT
  Age: 56 Year
  Sex: Male

DRUGS (2)
  1. NEUPRO [Suspect]
     Indication: RESTLESS LEGS SYNDROME
     Dosage: 2.25MG DAILY, TOPICAL ODT
     Route: 061
  2. REMITCH [Suspect]
     Dosage: 2.5 MCG DAILY
     Route: 048

REACTIONS (1)
  - Hepatic function abnormal [Recovered/Resolved]
